FAERS Safety Report 4853909-9 (Version None)
Quarter: 2005Q4

REPORT INFORMATION
  Report Type: 
  Country: None (occurrence: None)
  Receive Date: 20051214
  Receipt Date: 20051005
  Transmission Date: 20060501
  Serious: Yes (Hospitalization)
  Sender: FDA-Public Use
  Company Number: US-MERCK-0510USA04057

PATIENT
  Age: 66 Year
  Sex: Male
  Weight: 84 kg

DRUGS (7)
  1. VIOXX [Suspect]
     Indication: GOUT
     Route: 048
     Dates: start: 20021101, end: 20030101
  2. TOPROL-XL [Concomitant]
     Route: 065
  3. ZOCOR [Concomitant]
     Route: 065
  4. PLAVIX [Concomitant]
     Route: 065
  5. ALTACE [Concomitant]
     Route: 065
  6. ZOLOFT [Concomitant]
     Route: 065
  7. ASPIRIN [Concomitant]
     Route: 065

REACTIONS (3)
  - CHEST PAIN [None]
  - MYOCARDIAL INFARCTION [None]
  - STRESS [None]
